FAERS Safety Report 12999100 (Version 5)
Quarter: 2017Q1

REPORT INFORMATION
  Report Type: Spontaneous
  Country: JP (occurrence: JP)
  Receive Date: 20161205
  Receipt Date: 20170207
  Transmission Date: 20170428
  Serious: Yes (Other)
  Sender: FDA-Public Use
  Company Number: JP-PFIZER INC-2016561147

PATIENT
  Age: 62 Year
  Sex: Female

DRUGS (4)
  1. IOPAMIRON [Suspect]
     Active Substance: IOPAMIDOL
     Dosage: UNK
     Route: 065
     Dates: start: 201202
  2. AMIODARONE HCL [Suspect]
     Active Substance: AMIODARONE HYDROCHLORIDE
     Dosage: UNK
     Route: 065
  3. IOPAMIRON [Suspect]
     Active Substance: IOPAMIDOL
     Dosage: UNK
     Route: 065
     Dates: start: 201305
  4. IOPAMIRON [Suspect]
     Active Substance: IOPAMIDOL
     Dosage: UNK
     Route: 065
     Dates: start: 2014

REACTIONS (1)
  - Pseudolymphoma [Unknown]

NARRATIVE: CASE EVENT DATE: 201305
